FAERS Safety Report 17356802 (Version 1)
Quarter: 2020Q1

REPORT INFORMATION
  Report Type: Spontaneous
  Country: US (occurrence: US)
  Receive Date: 20200131
  Receipt Date: 20200131
  Transmission Date: 20200409
  Serious: No
  Sender: FDA-Public Use
  Company Number: US-PERRIGO-19US000491

PATIENT
  Age: 86 Year
  Sex: Female
  Weight: 45.35 kg

DRUGS (9)
  1. SYNTHROID [Concomitant]
     Active Substance: LEVOTHYROXINE SODIUM
     Indication: HYPOTHYROIDISM
     Dosage: 50 MG
     Route: 065
  2. ZETIA [Concomitant]
     Active Substance: EZETIMIBE
     Indication: BLOOD CHOLESTEROL INCREASED
     Dosage: 10 MG
     Route: 065
     Dates: start: 2009
  3. COENZYME Q10 [Concomitant]
     Active Substance: UBIDECARENONE
     Indication: SUPPLEMENTATION THERAPY
     Dosage: 100 MG
     Route: 065
     Dates: start: 2009
  4. HALOBETASOL PROPIONATE. [Suspect]
     Active Substance: HALOBETASOL PROPIONATE
     Indication: PSORIASIS
     Dosage: 1 APPLICATION, BID, 2 WEKS ON AND 1 WEEK OFF
     Route: 061
     Dates: start: 201809, end: 20190107
  5. HALOBETASOL PROPIONATE. [Suspect]
     Active Substance: HALOBETASOL PROPIONATE
     Dosage: 1 APPLICATION, BID, 2 WEKS ON AND 1 WEEK OFF
     Route: 061
     Dates: start: 201809, end: 20190107
  6. VITAMIN D3 [Concomitant]
     Active Substance: CHOLECALCIFEROL
     Indication: SUPPLEMENTATION THERAPY
     Dosage: 1000IU
     Route: 065
     Dates: start: 2008
  7. LUTEIN                             /01638501/ [Concomitant]
     Active Substance: LUTEIN
     Indication: MACULAR DEGENERATION
     Dosage: UNK
     Route: 065
     Dates: start: 2008
  8. PRAVASTATIN. [Concomitant]
     Active Substance: PRAVASTATIN
     Indication: BLOOD CHOLESTEROL INCREASED
     Dosage: 40 MG
     Route: 065
     Dates: start: 2009
  9. LISINOPRIL. [Concomitant]
     Active Substance: LISINOPRIL
     Indication: HYPERTENSION
     Dosage: 5 MG
     Route: 065
     Dates: start: 2009

REACTIONS (4)
  - Drug ineffective [Unknown]
  - Blood glucose increased [Unknown]
  - Condition aggravated [Recovering/Resolving]
  - Application site pain [Recovered/Resolved]

NARRATIVE: CASE EVENT DATE: 201809
